FAERS Safety Report 5566277-4 (Version None)
Quarter: 2007Q4

REPORT INFORMATION
  Report Type: 
  Country: None (occurrence: None)
  Receive Date: 20071213
  Receipt Date: 20071213
  Transmission Date: 20080405
  Serious: No
  Sender: FDA-Public Use
  Company Number: None

PATIENT
  Age: 61 Year
  Sex: Male

DRUGS (2)
  1. MIDAZOLAM HCL [Suspect]
     Indication: LIGHT ANAESTHESIA
     Dosage: 2MG QWEEK IV
     Route: 042
     Dates: start: 20071116, end: 20071116
  2. MEPERIDINE [Suspect]
     Indication: LIGHT ANAESTHESIA
     Dosage: 50MG ONCE IV
     Route: 042
     Dates: start: 20071116, end: 20071116

REACTIONS (4)
  - BRADYCARDIA [None]
  - HYPOTENSION [None]
  - RESPIRATORY DEPRESSION [None]
  - SEDATION [None]
